FAERS Safety Report 5643955-X (Version None)
Quarter: 2008Q1

REPORT INFORMATION
  Report Type: 
  Country: None (occurrence: None)
  Receive Date: 20080226
  Receipt Date: 20080212
  Transmission Date: 20080703
  Serious: Yes (Death, Hospitalization)
  Sender: FDA-Public Use
  Company Number: 002#2#2007-00245

PATIENT
  Age: 82 Year
  Sex: Male
  Weight: 66 kg

DRUGS (5)
  1. NEUPRO [Suspect]
     Indication: PARKINSON'S DISEASE
     Dosage: 2MG/24H, 1 IN 1D, TRANSDERMAL;4MG/24H, 1 IN 1 D, TRANSDERMAL
     Route: 062
     Dates: start: 20071022, end: 20071026
  2. NEUPRO [Suspect]
     Indication: PARKINSON'S DISEASE
     Dosage: 2MG/24H, 1 IN 1D, TRANSDERMAL;4MG/24H, 1 IN 1 D, TRANSDERMAL
     Route: 062
     Dates: start: 20070927
  3. NEUPRO [Suspect]
     Indication: PARKINSON'S DISEASE
     Dosage: 2MG/24H, 1 IN 1D, TRANSDERMAL;4MG/24H, 1 IN 1 D, TRANSDERMAL
     Route: 062
     Dates: start: 20071027
  4. SINEMET [Concomitant]
  5. ATENOLOL [Concomitant]

REACTIONS (5)
  - BRAIN OEDEMA [None]
  - DEPRESSED LEVEL OF CONSCIOUSNESS [None]
  - HYPERSOMNIA [None]
  - INTRACRANIAL PRESSURE INCREASED [None]
  - SOMNOLENCE [None]
